FAERS Safety Report 6865097-8 (Version None)
Quarter: 2010Q3

REPORT INFORMATION
  Report Type: 
  Country: None (occurrence: None)
  Receive Date: 20100721
  Receipt Date: 20080411
  Transmission Date: 20110219
  Serious: No
  Sender: FDA-Public Use
  Company Number: US-PFIZER INC-2008033250

PATIENT
  Sex: Female
  Weight: 87.727 kg

DRUGS (10)
  1. CHANTIX [Suspect]
     Indication: SMOKING CESSATION THERAPY
     Dates: start: 20080327
  2. PAXIL [Concomitant]
  3. LAMICTAL [Concomitant]
  4. TOPROL-XL [Concomitant]
  5. LEVOTHYROXINE SODIUM [Concomitant]
  6. LIPITOR [Concomitant]
  7. GEMFIBROZIL [Concomitant]
  8. MULTI-VITAMINS [Concomitant]
  9. MIRAPEX [Concomitant]
  10. LYRICA [Concomitant]

REACTIONS (2)
  - INCREASED APPETITE [None]
  - WEIGHT INCREASED [None]
